FAERS Safety Report 14685655 (Version 21)
Quarter: 2023Q2

REPORT INFORMATION
  Report Type: Spontaneous
  Country: CA (occurrence: CA)
  Receive Date: 20180327
  Receipt Date: 20230515
  Transmission Date: 20230721
  Serious: Yes (Hospitalization, Other)
  Sender: FDA-Public Use
  Company Number: CA-PFIZER INC-2018115963

PATIENT
  Age: 63 Year
  Sex: Female

DRUGS (42)
  1. SOMAVERT [Suspect]
     Active Substance: PEGVISOMANT
     Indication: Acromegaly
     Dosage: 25 MG, 1X/DAY
     Route: 058
     Dates: start: 20160822, end: 2017
  2. SOMAVERT [Suspect]
     Active Substance: PEGVISOMANT
     Dosage: 30 MG, 1X/DAY, OD ALTERNATING WITH 25 MG OD EVERY 2 DAYS
     Route: 058
     Dates: start: 2017, end: 2017
  3. SOMAVERT [Suspect]
     Active Substance: PEGVISOMANT
     Dosage: 30 MG, 1X/DAY, DISCONTINUED
     Route: 058
     Dates: start: 2017
  4. SOMAVERT [Suspect]
     Active Substance: PEGVISOMANT
     Dosage: 30 MG, 6X/WEEK AND OFF ON SUNDAY
     Route: 058
     Dates: start: 2017
  5. SOMAVERT [Suspect]
     Active Substance: PEGVISOMANT
     Dosage: 30 MG (DISCONTINUED)
     Route: 058
  6. SOMAVERT [Suspect]
     Active Substance: PEGVISOMANT
     Dosage: 30 MG, 6X/WEEK, 6 DAYS A WEEK
     Route: 058
     Dates: end: 202211
  7. SOMAVERT [Suspect]
     Active Substance: PEGVISOMANT
     Dosage: 30 MG, 5X/WEEK, 5 DAYS A WEEK
     Route: 058
     Dates: start: 202211
  8. SOMAVERT [Suspect]
     Active Substance: PEGVISOMANT
     Dosage: 30 MG 4-5X/WEEK
     Route: 058
  9. CITALOPRAM [Concomitant]
     Active Substance: CITALOPRAM HYDROBROMIDE
     Dosage: 20 MG, 1X/DAY, OD, QD
     Route: 048
  10. CITALOPRAM [Concomitant]
     Active Substance: CITALOPRAM HYDROBROMIDE
     Dosage: 20 MG, 1X/DAY
     Route: 065
  11. PERINDOPRIL [Concomitant]
     Active Substance: PERINDOPRIL
     Dosage: 10 MG OD (1X/DAY) (AM)(MORNING), QD
     Route: 048
  12. PERINDOPRIL [Concomitant]
     Active Substance: PERINDOPRIL
     Dosage: 10 MG, 1X/DAY
     Route: 065
  13. GABAPENTIN [Concomitant]
     Active Substance: GABAPENTIN
     Dosage: 600 MG BID (2X/DAY)
     Route: 048
  14. GABAPENTIN [Concomitant]
     Active Substance: GABAPENTIN
     Dosage: 1 DF,DOSAGE INFORMATION NOT AVAILABLE
     Route: 065
  15. HYDROCORTISONE [Concomitant]
     Active Substance: HYDROCORTISONE
     Dosage: 15 MG AM (MORNING)
     Route: 048
  16. HYDROCORTISONE [Concomitant]
     Active Substance: HYDROCORTISONE
     Dosage: 5 MG PM (NIGHT)
     Route: 048
     Dates: start: 201611
  17. HYDROCORTISONE [Concomitant]
     Active Substance: HYDROCORTISONE
     Dosage: 1 DF, DOSAGE INFORMATION NOT AVAILABLE
     Route: 065
  18. INSULINA HUMALOG [Concomitant]
     Dosage: 12 UNITS AM (MORNING)
     Route: 058
  19. INSULINA HUMALOG [Concomitant]
     Dosage: UNK, 2X/DAY (DOSAGE UNK)
  20. INSULINA HUMALOG [Concomitant]
     Dosage: 14 UNITS (INCREASE 2-3 UNITS PRN (AS NEEDED))
     Route: 058
  21. INSULINA HUMALOG [Concomitant]
     Dosage: UNK UNK, 3X/DAY, TID (DOSAGE UNK)
     Route: 058
  22. INSULINA HUMALOG [Concomitant]
     Dosage: 1 DF, 3X/DAY, DOSAGE INFORMATION NOT AVAILABLE
     Route: 065
  23. LANTUS [Concomitant]
     Active Substance: INSULIN GLARGINE
     Dosage: 18 UNITS AM (MORNING)
     Route: 058
  24. LANTUS [Concomitant]
     Active Substance: INSULIN GLARGINE
     Dosage: 26 UNITS PM (NIGHT)
     Route: 058
  25. LANTUS [Concomitant]
     Active Substance: INSULIN GLARGINE
     Dosage: UNK UNK, 2X/DAY, BID
     Route: 058
  26. LANTUS [Concomitant]
     Active Substance: INSULIN GLARGINE
     Dosage: 1 DF, 2X/DAY, DOSAGE INFORMATION NOT AVAILABLE
     Route: 065
  27. METFORMIN [Concomitant]
     Active Substance: METFORMIN HYDROCHLORIDE
     Dosage: 250 MG BID (2X/DAY)
     Route: 048
  28. METOPROLOL [Concomitant]
     Active Substance: METOPROLOL
     Dosage: 25 MG BID (2X/DAY)
     Route: 048
  29. METOPROLOL [Concomitant]
     Active Substance: METOPROLOL
     Dosage: 25 MG, 2X/DAY
     Route: 065
  30. MODERNA COVID-19 VACCINE [Concomitant]
     Active Substance: ELASOMERAN
     Indication: COVID-19 immunisation
     Dosage: SECOND BOOSTER
  31. OZEMPIC [Concomitant]
     Active Substance: SEMAGLUTIDE
     Dosage: UNK
  32. OZEMPIC [Concomitant]
     Active Substance: SEMAGLUTIDE
     Dosage: 1 DF, DOSAGE INFORMATION NOT AVAILABLE
     Route: 065
  33. OZEMPIC [Concomitant]
     Active Substance: SEMAGLUTIDE
     Dosage: 1 DF, DOSAGE INFORMATION NOT AVAILABLE
     Route: 065
     Dates: start: 202304
  34. RABEPRAZOLE [Concomitant]
     Active Substance: RABEPRAZOLE
     Dosage: 20 MG, DAILY, QD
     Route: 065
  35. RABEPRAZOLE [Concomitant]
     Active Substance: RABEPRAZOLE
     Dosage: 20 MG, 1X/DAY
     Route: 065
  36. ROSUVASTATIN [Concomitant]
     Active Substance: ROSUVASTATIN
     Dosage: UNK
  37. ROSUVASTATIN [Concomitant]
     Active Substance: ROSUVASTATIN
     Dosage: 1 DF, DOSAGE INFORMATION NOT AVAILABLE
     Route: 065
  38. SOMATULINE DEPOT [Concomitant]
     Active Substance: LANREOTIDE ACETATE
     Dosage: UNK, MONTHLY, ONCE PER MONTH
     Route: 058
  39. SOMATULINE DEPOT [Concomitant]
     Active Substance: LANREOTIDE ACETATE
     Dosage: 1 DF, MONTHLY, DOSAGE INFORMATION NOT AVAILABLE
     Route: 058
  40. SYNTHROID [Concomitant]
     Active Substance: LEVOTHYROXINE SODIUM
     Dosage: UNK
     Route: 048
  41. ZOPICLONE [Concomitant]
     Active Substance: ZOPICLONE
     Dosage: 7.5 MG Q (EVERY) HS (BEFORE BED)
     Route: 048
  42. ZOPICLONE [Concomitant]
     Active Substance: ZOPICLONE
     Dosage: 7.5 MG, 1X/DAY, AT BEDTIME
     Route: 065

REACTIONS (21)
  - Dehydration [Unknown]
  - Adrenal insufficiency [Unknown]
  - Blood pressure decreased [Unknown]
  - Sepsis [Unknown]
  - Tooth extraction [Recovered/Resolved]
  - Clostridium difficile infection [Recovered/Resolved]
  - Blood glucose abnormal [Recovered/Resolved]
  - Influenza [Unknown]
  - Fatigue [Not Recovered/Not Resolved]
  - Nausea [Not Recovered/Not Resolved]
  - Vomiting [Not Recovered/Not Resolved]
  - Diarrhoea [Not Recovered/Not Resolved]
  - Chills [Unknown]
  - Contusion [Recovering/Resolving]
  - Immune system disorder [Unknown]
  - Injection site pain [Unknown]
  - Cystitis [Recovered/Resolved]
  - Off label use [Unknown]
  - Product dose omission issue [Unknown]
  - Wrong technique in device usage process [Unknown]
  - Multiple use of single-use product [Unknown]

NARRATIVE: CASE EVENT DATE: 20180201
